FAERS Safety Report 7952576-5 (Version None)
Quarter: 2011Q4

REPORT INFORMATION
  Report Type: 
  Country: None (occurrence: None)
  Receive Date: 20111201
  Receipt Date: 20111125
  Transmission Date: 20120403
  Serious: Yes (Other)
  Sender: FDA-Public Use
  Company Number: US-CELGENEUS-163-21880-11100924

PATIENT
  Sex: Female

DRUGS (10)
  1. GABAPENTIN [Concomitant]
     Route: 065
     Dates: start: 20110101
  2. ASPIRIN [Concomitant]
     Route: 065
     Dates: start: 20110101
  3. ANTIBIOTICS [Concomitant]
     Route: 065
     Dates: start: 20110101
  4. VITAMIN B-12 [Concomitant]
     Route: 065
     Dates: start: 20110101
  5. PRILOSEC [Concomitant]
     Route: 065
     Dates: start: 20110101
  6. DEXAMETHASONE [Concomitant]
     Dosage: 4 MILLIGRAM
     Route: 065
     Dates: start: 20100101
  7. FOLIC ACID [Concomitant]
     Route: 065
     Dates: start: 20110101
  8. FLEXERIL [Concomitant]
     Route: 065
     Dates: start: 20110101
  9. VELCADE [Concomitant]
     Route: 065
     Dates: start: 20110101
  10. REVLIMID [Suspect]
     Indication: MULTIPLE MYELOMA
     Dosage: 15 MILLIGRAM
     Route: 048
     Dates: start: 20080101

REACTIONS (1)
  - GALLBLADDER PAIN [None]
